FAERS Safety Report 8171287-7 (Version None)
Quarter: 2012Q1

REPORT INFORMATION
  Report Type: 
  Country: None (occurrence: None)
  Receive Date: 20120228
  Receipt Date: 20120220
  Transmission Date: 20120608
  Serious: Yes (Hospitalization)
  Sender: FDA-Public Use
  Company Number: JP-MERCK-1201USA03653

PATIENT
  Age: 54 Year
  Sex: Female
  Weight: 58 kg

DRUGS (12)
  1. COTRIM [Concomitant]
     Indication: PNEUMONIA
     Route: 048
  2. PREDNISOLONE [Concomitant]
     Indication: DERMATOMYOSITIS
     Dosage: 60 MG ON THE FIRST OR LESS
     Route: 048
  3. FOSAMAX [Suspect]
     Indication: OSTEOPOROSIS
     Route: 048
  4. ZETIA [Concomitant]
     Route: 048
  5. ANPLAG [Concomitant]
     Route: 048
  6. TANATRIL [Concomitant]
     Route: 048
  7. PROGRAF [Concomitant]
     Indication: DERMATOMYOSITIS
     Route: 048
  8. ASPIRIN [Concomitant]
     Route: 048
  9. COZAAR [Concomitant]
     Route: 048
  10. FLUVASTATIN [Concomitant]
     Route: 048
  11. FAMOTIDINE [Concomitant]
     Route: 048
  12. ONEALFA [Concomitant]
     Indication: OSTEOPOROSIS
     Route: 048

REACTIONS (2)
  - LOWER LIMB FRACTURE [None]
  - FEMUR FRACTURE [None]
